FAERS Safety Report 4750587-4 (Version None)
Quarter: 2005Q3

REPORT INFORMATION
  Report Type: 
  Country: None (occurrence: None)
  Receive Date: 20050819
  Receipt Date: 20050812
  Transmission Date: 20060218
  Serious: Yes (Death)
  Sender: FDA-Public Use
  Company Number: HQWYE524326JUL05

PATIENT
  Age: 87 Year
  Sex: Female

DRUGS (3)
  1. TAZONAM (PIPERACILLIN/TAZOBACTAM, INJECTION) [Suspect]
     Indication: PNEUMONIA
     Dosage: 2.5 GRAMS
  2. ANAEROBEX (METRONIDAZOLE) [Suspect]
  3. CUROCEF (CEFUROXIME SODIUM) [Suspect]

REACTIONS (3)
  - CONCOMITANT DISEASE PROGRESSION [None]
  - MULTI-ORGAN FAILURE [None]
  - PNEUMONIA [None]
